FAERS Safety Report 12742751 (Version 1)
Quarter: 2016Q3

REPORT INFORMATION
  Report Type: Spontaneous
  Country: US (occurrence: US)
  Receive Date: 20160914
  Receipt Date: 20160914
  Transmission Date: 20161109
  Serious: No
  Sender: FDA-Public Use
  Company Number: None

PATIENT
  Age: 74 Year
  Sex: Female

DRUGS (3)
  1. DEX 4 [Suspect]
     Active Substance: DEXTROSE
     Indication: PRODUCT USED FOR UNKNOWN INDICATION
     Route: 048
     Dates: start: 20160907, end: 20160911
  2. BENADRYL ALLERGY [Suspect]
     Active Substance: DIPHENHYDRAMINE HYDROCHLORIDE
     Indication: PRODUCT USED FOR UNKNOWN INDICATION
     Route: 048
     Dates: start: 20160911, end: 20160911
  3. NATURE-THROID [Concomitant]
     Active Substance: THYROID, PORCINE

REACTIONS (4)
  - Rash [None]
  - Skin disorder [None]
  - Blood glucose decreased [None]
  - Reaction to colouring [None]

NARRATIVE: CASE EVENT DATE: 20160910
